FAERS Safety Report 4765978-5 (Version None)
Quarter: 2005Q3

REPORT INFORMATION
  Report Type: 
  Country: None (occurrence: None)
  Receive Date: 20050906
  Receipt Date: 20050819
  Transmission Date: 20060218
  Serious: Yes (Death, Hospitalization, Other)
  Sender: FDA-Public Use
  Company Number: EWC050845491

PATIENT
  Age: 20 Year
  Sex: Female
  Weight: 40 kg

DRUGS (1)
  1. OLANZAPINE [Suspect]
     Indication: ANXIETY DISORDER
     Dosage: 5 MG DAY
     Dates: start: 20050225, end: 20050226

REACTIONS (16)
  - ANOXIC ENCEPHALOPATHY [None]
  - BRAIN HERNIATION [None]
  - BRAIN OEDEMA [None]
  - ELECTROCARDIOGRAM QT CORRECTED INTERVAL PROLONGED [None]
  - ENCEPHALOPATHY [None]
  - GENERAL PHYSICAL HEALTH DETERIORATION [None]
  - GLASGOW COMA SCALE ABNORMAL [None]
  - GRAND MAL CONVULSION [None]
  - HYPERNATRAEMIA [None]
  - HYPOKALAEMIA [None]
  - HYPOXIA [None]
  - METABOLIC DISORDER [None]
  - MYDRIASIS [None]
  - MYOCLONUS [None]
  - NEUROLEPTIC MALIGNANT SYNDROME [None]
  - PYREXIA [None]
